FAERS Safety Report 24652661 (Version 2)
Quarter: 2024Q4

REPORT INFORMATION
  Report Type: Spontaneous
  Country: US (occurrence: US)
  Receive Date: 20241122
  Receipt Date: 20241231
  Transmission Date: 20250114
  Serious: Yes (Other)
  Sender: AMGEN
  Company Number: US-AMGEN-USASP2024228050

PATIENT
  Sex: Male

DRUGS (4)
  1. PROCRIT [Suspect]
     Active Substance: ERYTHROPOIETIN
     Indication: Myelofibrosis
     Dosage: 60000 UNIT, AS NECESSARY (AS NEEDED)
     Route: 065
  2. PROCRIT [Suspect]
     Active Substance: ERYTHROPOIETIN
     Indication: Off label use
  3. RETACRIT [Suspect]
     Active Substance: EPOETIN ALFA-EPBX
     Indication: Myelofibrosis
     Dosage: UNK UNK, Q2WK (EVERY TWO WEEK)
     Route: 065
  4. JAKAFI [Suspect]
     Active Substance: RUXOLITINIB
     Indication: Myelofibrosis
     Dosage: UNK
     Route: 065
     Dates: start: 201807

REACTIONS (5)
  - Skin cancer [Not Recovered/Not Resolved]
  - Haemoglobin decreased [Unknown]
  - COVID-19 [Unknown]
  - Fatigue [Unknown]
  - Off label use [Unknown]
